FAERS Safety Report 25046044 (Version 2)
Quarter: 2025Q1

REPORT INFORMATION
  Report Type: Spontaneous
  Country: AU (occurrence: AU)
  Receive Date: 20250306
  Receipt Date: 20250312
  Transmission Date: 20250409
  Serious: Yes (Life-Threatening, Hospitalization, Other)
  Sender: SANOFI AVENTIS
  Company Number: AU-SA-2025SA065245

PATIENT
  Age: 56 Year
  Sex: Female

DRUGS (14)
  1. INSULIN GLARGINE [Suspect]
     Active Substance: INSULIN GLARGINE
     Dosage: 36 IU, QD
  2. PROMETHAZINE HYDROCHLORIDE [Suspect]
     Active Substance: PROMETHAZINE HYDROCHLORIDE
     Indication: Local reaction
  3. APIXABAN [Suspect]
     Active Substance: APIXABAN
     Dosage: 10 MG, QD
  4. FAMOTIDINE [Suspect]
     Active Substance: FAMOTIDINE
     Indication: Mast cell activation syndrome
     Dosage: 40 MG, QD
  5. MONTELUKAST SODIUM [Suspect]
     Active Substance: MONTELUKAST SODIUM
     Indication: Mast cell activation syndrome
  6. ROSUVASTATIN CALCIUM [Suspect]
     Active Substance: ROSUVASTATIN CALCIUM
  7. COMIRNATY (TOZINAMERAN) [Suspect]
     Active Substance: TOZINAMERAN
     Indication: COVID-19 immunisation
  8. NOVORAPID [Suspect]
     Active Substance: INSULIN ASPART
     Dosage: 15 IU, QD
  9. ANASTROZOLE [Suspect]
     Active Substance: ANASTROZOLE
     Indication: Breast cancer
     Dosage: 1 MG, QD
  10. ESOMEPRAZOLE MAGNESIUM [Suspect]
     Active Substance: ESOMEPRAZOLE MAGNESIUM
     Dosage: 40 MG, QD
  11. LORATADINE [Suspect]
     Active Substance: LORATADINE
     Indication: Mast cell activation syndrome
     Dosage: 40 MG, QD
  12. LORATADINE [Suspect]
     Active Substance: LORATADINE
     Dosage: 10 MG, QD
  13. METFORMIN HYDROCHLORIDE [Suspect]
     Active Substance: METFORMIN HYDROCHLORIDE
     Indication: Diabetes mellitus
     Dosage: 2 G, QD
  14. ALBUTEROL SULFATE [Suspect]
     Active Substance: ALBUTEROL SULFATE

REACTIONS (11)
  - Anaphylactic reaction [Recovering/Resolving]
  - Respiratory failure [Unknown]
  - Pneumonia [Unknown]
  - COVID-19 [Unknown]
  - Human rhinovirus test positive [Unknown]
  - Mouth haemorrhage [Unknown]
  - Respiratory syncytial virus test positive [Unknown]
  - Tongue injury [Unknown]
  - Upper respiratory tract infection [Unknown]
  - Viral test positive [Unknown]
  - Drug ineffective [Unknown]

NARRATIVE: CASE EVENT DATE: 20180718
